FAERS Safety Report 7907793-7 (Version None)
Quarter: 2011Q4

REPORT INFORMATION
  Report Type: 
  Country: None (occurrence: None)
  Receive Date: 20111110
  Receipt Date: 20110314
  Transmission Date: 20120403
  Serious: No
  Sender: FDA-Public Use
  Company Number: US-BAYER-2011-022986

PATIENT
  Sex: Female

DRUGS (1)
  1. CLIMARA [Suspect]
     Dosage: 0.1 MG, UNK

REACTIONS (3)
  - FEELING ABNORMAL [None]
  - PRODUCT ADHESION ISSUE [None]
  - MENOPAUSAL SYMPTOMS [None]
